FAERS Safety Report 9406073 (Version 1)
Quarter: 2013Q3

REPORT INFORMATION
  Report Type: Spontaneous
  Country: AU (occurrence: AU)
  Receive Date: 20130717
  Receipt Date: 20130717
  Transmission Date: 20140515
  Serious: Yes (Other)
  Sender: FDA-Public Use
  Company Number: AU-PFIZER INC-2013209432

PATIENT
  Sex: Male

DRUGS (3)
  1. LYRICA [Suspect]
     Indication: NEURALGIA
     Dosage: 75 MG, UNK
  2. LYRICA [Suspect]
     Dosage: 25 MG, UNK
  3. LYRICA [Suspect]
     Dosage: 75 MG, UNK

REACTIONS (4)
  - Dementia [Unknown]
  - Fall [Unknown]
  - Breakthrough pain [Unknown]
  - Tremor [Unknown]
